FAERS Safety Report 13403501 (Version 5)
Quarter: 2017Q4

REPORT INFORMATION
  Report Type: Spontaneous
  Country: HK (occurrence: HK)
  Receive Date: 20170404
  Receipt Date: 20171213
  Transmission Date: 20180320
  Serious: Yes (Disabling)
  Sender: FDA-Public Use
  Company Number: PHHY2017HK045062

PATIENT
  Age: 30 Year
  Sex: Female

DRUGS (1)
  1. COSENTYX [Suspect]
     Active Substance: SECUKINUMAB
     Indication: PSORIASIS
     Dosage: 300 MG, QW
     Route: 058
     Dates: start: 20170209, end: 20170310

REACTIONS (4)
  - Cervix carcinoma [Unknown]
  - Menstruation irregular [Unknown]
  - Adenocarcinoma of the cervix [Unknown]
  - Squamous cell carcinoma of the cervix [Unknown]

NARRATIVE: CASE EVENT DATE: 201702
